FAERS Safety Report 17287372 (Version 1)
Quarter: 2020Q1

REPORT INFORMATION
  Report Type: Spontaneous
  Country: US (occurrence: US)
  Receive Date: 20200120
  Receipt Date: 20200120
  Transmission Date: 20200409
  Serious: No
  Sender: FDA-Public Use
  Company Number: US-TEVA-2020-US-1168592

PATIENT

DRUGS (1)
  1. DILTIAZEM HYDROCHLORIDE. [Suspect]
     Active Substance: DILTIAZEM HYDROCHLORIDE
     Dosage: CRUSHED AND ADMINISTERED VIA FEEDING TUBE
     Route: 065
     Dates: start: 20200109

REACTIONS (2)
  - Wrong technique in product usage process [Unknown]
  - Product administration error [Unknown]
